FAERS Safety Report 11806573 (Version 1)
Quarter: 2015Q4

REPORT INFORMATION
  Report Type: Spontaneous
  Country: JP (occurrence: JP)
  Receive Date: 20151207
  Receipt Date: 20151207
  Transmission Date: 20160305
  Serious: Yes (Other)
  Sender: FDA-Public Use
  Company Number: JP-GLAXOSMITHKLINE-JP2015JPN171050

PATIENT
  Age: 35 Year
  Sex: Male

DRUGS (6)
  1. ALLERMIST [Suspect]
     Active Substance: FLUTICASONE FUROATE
     Indication: SEASONAL ALLERGY
     Dosage: UNK
     Route: 045
  2. RITONAVIR. [Interacting]
     Active Substance: RITONAVIR
     Indication: HIV INFECTION
  3. FLUNASE [Interacting]
     Active Substance: FLUTICASONE PROPIONATE
     Indication: SEASONAL ALLERGY
     Route: 045
  4. TENOFOVIR DISOPROXIL FUMARATE. [Concomitant]
     Active Substance: TENOFOVIR DISOPROXIL FUMARATE
  5. EMTRICITABINE [Concomitant]
     Active Substance: EMTRICITABINE
     Indication: HIV INFECTION
  6. DARUNAVIR ETHANOLATE. [Concomitant]
     Active Substance: DARUNAVIR ETHANOLATE
     Indication: HIV INFECTION

REACTIONS (11)
  - Blood corticotrophin decreased [Unknown]
  - Blood cortisol decreased [Unknown]
  - Malaise [Unknown]
  - Asthenia [Unknown]
  - Cushingoid [Unknown]
  - Lipohypertrophy [Unknown]
  - Weight increased [Unknown]
  - Cushing^s syndrome [Unknown]
  - Acne [Unknown]
  - Drug interaction [Unknown]
  - Adrenal insufficiency [Unknown]
